FAERS Safety Report 5600310-6 (Version None)
Quarter: 2007Q4

REPORT INFORMATION
  Report Type: 
  Country: None (occurrence: None)
  Receive Date: 20071226
  Receipt Date: 20070424
  Transmission Date: 20080405
  Serious: Yes (Hospitalization)
  Sender: FDA-Public Use
  Company Number: 239120

PATIENT
  Age: 53 Year
  Sex: Male
  Weight: 99.8 kg

DRUGS (1)
  1. RAPTIVA [Suspect]
     Indication: PSORIASIS
     Dosage: 1 ML, 1/WEEK, SUBCUTANEOUS
     Route: 058
     Dates: start: 20050224

REACTIONS (3)
  - BRONCHITIS [None]
  - PNEUMONIA [None]
  - PSORIASIS [None]
